FAERS Safety Report 9370597 (Version 1)
Quarter: 2013Q2

REPORT INFORMATION
  Report Type: Spontaneous
  Country: CN (occurrence: CN)
  Receive Date: 20130626
  Receipt Date: 20130626
  Transmission Date: 20140414
  Serious: Yes (Death)
  Sender: FDA-Public Use
  Company Number: CN-PFIZER INC-2013187380

PATIENT
  Age: 64 Year
  Sex: Female

DRUGS (3)
  1. EPIRUBICIN HCL [Suspect]
     Indication: BREAST CANCER
     Dosage: 75 MG/M2, CYCLIC (DAILY, DAY 1)
     Route: 042
  2. CYCLOPHOSPHAMIDE [Suspect]
     Indication: BREAST CANCER
     Dosage: 600 MG/M2, CYCLIC (DAILY, DAY 1)
     Route: 042
  3. 5-FU [Suspect]
     Indication: BREAST CANCER
     Dosage: 500 MG/M2, CYCLIC (DAILY, DAY 1)
     Route: 042

REACTIONS (3)
  - Second primary malignancy [Fatal]
  - Acute myelomonocytic leukaemia [Fatal]
  - Sarcoma [Fatal]
